FAERS Safety Report 12271047 (Version 1)
Quarter: 2016Q2

REPORT INFORMATION
  Report Type: Spontaneous
  Country: US (occurrence: US)
  Receive Date: 20160415
  Receipt Date: 20160415
  Transmission Date: 20160815
  Serious: Yes (Hospitalization, Disabling)
  Sender: FDA-Public Use
  Company Number: US-ENDO PHARMACEUTICALS INC.-2016-000569

PATIENT
  Age: 51 Year
  Sex: Male
  Weight: 98.97 kg

DRUGS (5)
  1. AZITHROMYCIN ANHYDROUS. [Concomitant]
     Active Substance: AZITHROMYCIN ANHYDROUS
     Indication: PRODUCT USED FOR UNKNOWN INDICATION
     Route: 065
  2. FUROSEMIDE. [Concomitant]
     Active Substance: FUROSEMIDE
     Indication: PRODUCT USED FOR UNKNOWN INDICATION
     Route: 065
  3. LISINOPRIL. [Concomitant]
     Active Substance: LISINOPRIL
     Indication: PRODUCT USED FOR UNKNOWN INDICATION
     Route: 065
  4. POTASSIUM CL ER [Concomitant]
     Active Substance: POTASSIUM CHLORIDE
     Indication: PRODUCT USED FOR UNKNOWN INDICATION
     Route: 065
  5. TESTIM [Suspect]
     Active Substance: TESTOSTERONE
     Indication: ANDROGEN REPLACEMENT THERAPY
     Route: 062
     Dates: start: 201001, end: 201006

REACTIONS (15)
  - Deep vein thrombosis [Not Recovered/Not Resolved]
  - Ventricular tachycardia [Unknown]
  - Helicobacter gastritis [Unknown]
  - Anxiety [Unknown]
  - Pulmonary embolism [Not Recovered/Not Resolved]
  - Cardiac failure congestive [Not Recovered/Not Resolved]
  - Pulmonary hypertension [Unknown]
  - Left ventricular dysfunction [Unknown]
  - Acute kidney injury [Unknown]
  - Hypokalaemia [Unknown]
  - Pulmonary hypertension [Unknown]
  - Thyroid mass [Unknown]
  - Anaemia [Unknown]
  - Sleep apnoea syndrome [Unknown]
  - Haemorrhoids [Unknown]

NARRATIVE: CASE EVENT DATE: 20100414
